FAERS Safety Report 6327438-X (Version None)
Quarter: 2009Q3

REPORT INFORMATION
  Report Type: 
  Country: None (occurrence: None)
  Receive Date: 20090825
  Receipt Date: 20090814
  Transmission Date: 20100115
  Serious: Yes (Life-Threatening, Hospitalization, Disabling)
  Sender: FDA-Public Use
  Company Number: GB-ROCHE-651147

PATIENT
  Age: 50 Year
  Sex: Female

DRUGS (7)
  1. TAMIFLU [Suspect]
     Indication: DRUG USE FOR UNKNOWN INDICATION
     Route: 065
     Dates: end: 20090726
  2. OMACOR [Concomitant]
  3. HORMONE REPLACEMENT THERAPY [Concomitant]
  4. ASPIRIN [Concomitant]
  5. ATENOLOL [Concomitant]
  6. ROSUVASTATIN [Concomitant]
  7. LANSOPRAZOLE [Concomitant]

REACTIONS (1)
  - CEREBRAL HAEMORRHAGE [None]
